FAERS Safety Report 8128924-2 (Version None)
Quarter: 2012Q1

REPORT INFORMATION
  Report Type: 
  Country: None (occurrence: None)
  Receive Date: 20120210
  Receipt Date: 20110526
  Transmission Date: 20120608
  Serious: No
  Sender: FDA-Public Use
  Company Number: US-BRISTOL-MYERS SQUIBB COMPANY-15780844

PATIENT
  Sex: Female

DRUGS (2)
  1. FORTEO [Suspect]
  2. ORENCIA [Suspect]

REACTIONS (4)
  - DECREASED APPETITE [None]
  - WEIGHT INCREASED [None]
  - SOMNOLENCE [None]
  - FATIGUE [None]
